FAERS Safety Report 25753715 (Version 4)
Quarter: 2025Q4

REPORT INFORMATION
  Report Type: Spontaneous
  Country: BR (occurrence: BR)
  Receive Date: 20250903
  Receipt Date: 20251230
  Transmission Date: 20260117
  Serious: Yes (Other)
  Sender: BOEHRINGER INGELHEIM
  Company Number: BR-Komodo Health-a23aa000007EbgPAAS

PATIENT
  Age: 55 Year
  Sex: Female

DRUGS (4)
  1. MICARDIS HCT [Suspect]
     Active Substance: HYDROCHLOROTHIAZIDE\TELMISARTAN
     Indication: Product used for unknown indication
     Dosage: FORM STRENGTH: 80/12.5 MILLIGRAMS.
  2. MICARDIS HCT [Suspect]
     Active Substance: HYDROCHLOROTHIAZIDE\TELMISARTAN
     Dosage: FORM STRENGTH: 80/12.5 MILLIGRAMS.
  3. MICARDIS HCT [Suspect]
     Active Substance: HYDROCHLOROTHIAZIDE\TELMISARTAN
     Dosage: FORM STRENGTH: 80/12.5 MILLIGRAMS.
  4. INDAPAMIDE\PERINDOPRIL ARGININE [Suspect]
     Active Substance: INDAPAMIDE\PERINDOPRIL ARGININE
     Indication: Product used for unknown indication
     Dates: start: 2025, end: 2025

REACTIONS (11)
  - Near death experience [Recovered/Resolved]
  - Drug ineffective [Unknown]
  - Extra dose administered [Unknown]
  - Malaise [Recovered/Resolved]
  - Overweight [Unknown]
  - Toothache [Unknown]
  - Hypertension [Unknown]
  - Extra dose administered [Unknown]
  - Feeling abnormal [Recovered/Resolved]
  - Ear pain [Unknown]
  - Product physical issue [Unknown]

NARRATIVE: CASE EVENT DATE: 20250101
